FAERS Safety Report 20869172 (Version 1)
Quarter: 2022Q2

REPORT INFORMATION
  Report Type: Spontaneous
  Country: US (occurrence: US)
  Receive Date: 20220524
  Receipt Date: 20220524
  Transmission Date: 20220720
  Serious: No
  Sender: FDA-Public Use
  Company Number: US-MYLANLABS-2022M1035062

PATIENT
  Age: 18 Year
  Sex: Female
  Weight: 49.9 kg

DRUGS (1)
  1. XULANE [Suspect]
     Active Substance: ETHINYL ESTRADIOL\NORELGESTROMIN
     Indication: Menstrual cycle management
     Dosage: UNK (150/35 MICROGAM)
     Route: 062
     Dates: start: 20220508

REACTIONS (2)
  - Product adhesion issue [Unknown]
  - Off label use [Unknown]

NARRATIVE: CASE EVENT DATE: 20220508
